FAERS Safety Report 25104227 (Version 2)
Quarter: 2025Q2

REPORT INFORMATION
  Report Type: Spontaneous
  Country: DE (occurrence: DE)
  Receive Date: 20250321
  Receipt Date: 20250523
  Transmission Date: 20250717
  Serious: Yes (Hospitalization, Other)
  Sender: BOEHRINGER INGELHEIM
  Company Number: DE-BoehringerIngelheim-2025-BI-016553

PATIENT
  Age: 54 Year
  Sex: Female
  Weight: 114 kg

DRUGS (1)
  1. JARDIANCE [Suspect]
     Active Substance: EMPAGLIFLOZIN
     Indication: Diabetes mellitus
     Dates: end: 202501

REACTIONS (2)
  - Fournier^s gangrene [Not Recovered/Not Resolved]
  - Sepsis [Unknown]

NARRATIVE: CASE EVENT DATE: 20250116
